FAERS Safety Report 4465919-4 (Version None)
Quarter: 2004Q3

REPORT INFORMATION
  Report Type: 
  Country: None (occurrence: None)
  Receive Date: 20040930
  Receipt Date: 20040920
  Transmission Date: 20050211
  Serious: Yes (Hospitalization)
  Sender: FDA-Public Use
  Company Number: 2004CG01864

PATIENT
  Age: 79 Year
  Sex: Male

DRUGS (7)
  1. NEXIUM [Suspect]
     Dosage: 40 MG QD PO
     Route: 048
     Dates: start: 20040814, end: 20040817
  2. MOPRAL [Suspect]
     Dosage: 40 MG QD IV
     Route: 042
     Dates: start: 20040812, end: 20040813
  3. PREVISCAN [Concomitant]
  4. AUGMENTIN '125' [Concomitant]
  5. VALPROIC ACID [Concomitant]
  6. NEURONTIN [Concomitant]
  7. TRIATEC [Concomitant]

REACTIONS (3)
  - CUTANEOUS VASCULITIS [None]
  - ECCHYMOSIS [None]
  - PETECHIAE [None]
